FAERS Safety Report 11473719 (Version 1)
Quarter: 2015Q3

REPORT INFORMATION
  Report Type: Spontaneous
  Country: FR (occurrence: FR)
  Receive Date: 20150908
  Receipt Date: 20150908
  Transmission Date: 20151125
  Serious: Yes (Hospitalization)
  Sender: FDA-Public Use
  Company Number: FR-B.I. PHARMACEUTICALS,INC./RIDGEFIELD-2015-BI-47861FF

PATIENT
  Age: 74 Year
  Sex: Female

DRUGS (2)
  1. AZILECT [Suspect]
     Active Substance: RASAGILINE MESYLATE
     Indication: PRODUCT USED FOR UNKNOWN INDICATION
     Dosage: STRENGHT:1 MG
     Route: 048
     Dates: start: 2005
  2. SIFROL [Suspect]
     Active Substance: PRAMIPEXOLE
     Indication: PRODUCT USED FOR UNKNOWN INDICATION
     Route: 048
     Dates: start: 2005

REACTIONS (1)
  - Raynaud^s phenomenon [Unknown]

NARRATIVE: CASE EVENT DATE: 2014
